FAERS Safety Report 9614670 (Version 2)
Quarter: 2014Q1

REPORT INFORMATION
  Report Type: Spontaneous
  Country: US (occurrence: US)
  Receive Date: 20131011
  Receipt Date: 20140318
  Transmission Date: 20141002
  Serious: Yes (Life-Threatening, Hospitalization)
  Sender: FDA-Public Use
  Company Number: US-JNJFOC-20131005129

PATIENT
  Age: 70 Year
  Sex: Female
  Weight: 50.35 kg

DRUGS (18)
  1. XARELTO [Suspect]
     Indication: CEREBROVASCULAR ACCIDENT PROPHYLAXIS
     Route: 048
     Dates: end: 20131007
  2. XARELTO [Suspect]
     Indication: ATRIAL FIBRILLATION
     Route: 048
     Dates: end: 20131007
  3. ALBUTEROL [Concomitant]
     Indication: ASTHMA
     Route: 065
  4. ATORVASTATIN [Concomitant]
     Route: 048
  5. VITAMIN B [Concomitant]
     Route: 048
  6. FOLIC ACID [Concomitant]
     Route: 048
  7. WELLBUTRIN [Concomitant]
     Route: 048
  8. AGGRENOX [Concomitant]
     Route: 048
  9. EPOGEN [Concomitant]
     Route: 065
  10. SLIDING SCALE INSULIN [Concomitant]
     Route: 065
  11. ATROVENT [Concomitant]
     Route: 045
  12. LACTULOSE [Concomitant]
     Route: 048
  13. LEVOTHYROXINE [Concomitant]
     Route: 065
  14. LOPERAMIDE [Concomitant]
     Route: 065
  15. REGLAN [Concomitant]
     Dosage: AS NECESSARY
     Route: 065
  16. TOPROL XL [Concomitant]
     Route: 065
  17. PROTONIX [Concomitant]
     Route: 065
  18. TRAZODONE [Concomitant]
     Route: 048

REACTIONS (4)
  - International normalised ratio increased [Unknown]
  - Blood pressure systolic decreased [Unknown]
  - Back pain [Unknown]
  - Incorrect dose administered [Recovered/Resolved]
